FAERS Safety Report 10251040 (Version 2)
Quarter: 2014Q3

REPORT INFORMATION
  Report Type: Spontaneous
  Country: JP (occurrence: JP)
  Receive Date: 20140620
  Receipt Date: 20140702
  Transmission Date: 20150326
  Serious: Yes (Life-Threatening)
  Sender: FDA-Public Use
  Company Number: JP-GE HEALTHCARE MEDICAL DIAGNOSTICS-OMPQ-PR-1406S-0634

PATIENT
  Age: 4 Year
  Sex: Female
  Weight: 16 kg

DRUGS (11)
  1. MEIACT [Concomitant]
     Active Substance: CEFDITOREN PIVOXIL
  2. OMNIPAQUE [Suspect]
     Active Substance: IOHEXOL
     Indication: DIAGNOSTIC PROCEDURE
  3. RESTAMIN [Concomitant]
     Active Substance: DIPHENHYDRAMINE
     Dates: start: 20140609
  4. MOHRUS [Concomitant]
     Active Substance: KETOPROFEN
  5. ANHIBA [Concomitant]
     Active Substance: ACETAMINOPHEN
  6. PEMILASTON [Concomitant]
     Dates: end: 20140612
  7. OMNIPAQUE [Suspect]
     Active Substance: IOHEXOL
     Indication: NECK PAIN
     Route: 042
     Dates: start: 20140609, end: 20140609
  8. MUCODYNE-DS [Concomitant]
     Active Substance: CARBOCYSTEINE
     Dates: end: 20140612
  9. CLAFEDEN [Concomitant]
     Dates: start: 20140607, end: 20140612
  10. ONON [Concomitant]
     Active Substance: PRANLUKAST
     Dates: end: 20140612
  11. TRICLORYL [Concomitant]
     Active Substance: TRICLOFOS SODIUM
     Dates: start: 20140609, end: 20140609

REACTIONS (1)
  - Anaphylactic shock [Recovered/Resolved]

NARRATIVE: CASE EVENT DATE: 20140609
